FAERS Safety Report 21830698 (Version 1)
Quarter: 2023Q1

REPORT INFORMATION
  Report Type: Spontaneous
  Country: US (occurrence: None)
  Receive Date: 20230105
  Receipt Date: 20230105
  Transmission Date: 20230418
  Serious: Yes (Disabling)
  Sender: FDA-Public Use
  Company Number: None

PATIENT
  Age: 63 Year
  Sex: Male
  Weight: 85.5 kg

DRUGS (8)
  1. POTASSIUM CITRATE [Suspect]
     Active Substance: POTASSIUM CITRATE
     Indication: Nephrolithiasis
     Dosage: OTHER QUANTITY : 1 TABLET(S);?FREQUENCY : DAILY;?
     Route: 048
     Dates: start: 20220905
  2. Lisinopril/Hctz 10-12.5 mg once/day [Concomitant]
  3. Potassium citrate 1620 mg once/day [Concomitant]
  4. Tamsulosin 0.4 mg capsule two/day [Concomitant]
  5. Glucosamine/Chondroitin sulfate (two tablets/day) [Concomitant]
  6. Men^s multi-vitamin (one/day) [Concomitant]
  7. vitamin D3 (one/day) [Concomitant]
  8. Advil (as necessary) [Concomitant]

REACTIONS (6)
  - Knee deformity [None]
  - Arthropathy [None]
  - Joint noise [None]
  - Arthralgia [None]
  - Therapy interrupted [None]
  - Arthritis [None]

NARRATIVE: CASE EVENT DATE: 20220905
